FAERS Safety Report 19018664 (Version 2)
Quarter: 2021Q4

REPORT INFORMATION
  Report Type: Spontaneous
  Country: US (occurrence: US)
  Receive Date: 20210317
  Receipt Date: 20211015
  Transmission Date: 20220303
  Serious: No
  Sender: FDA-Public Use
  Company Number: US-009507513-2102USA005345

PATIENT
  Age: 25 Year
  Sex: Female
  Weight: 109.3 kg

DRUGS (1)
  1. NEXPLANON [Suspect]
     Active Substance: ETONOGESTREL
     Indication: Contraception
     Dosage: 1 ROD, EVERY 3 YEARS; LEFT ARM
     Dates: start: 20190330, end: 20210211

REACTIONS (5)
  - Alopecia [Unknown]
  - Mood altered [Unknown]
  - Acne [Unknown]
  - Product physical issue [Unknown]
  - Poor quality device used [Unknown]

NARRATIVE: CASE EVENT DATE: 20210211
